FAERS Safety Report 11215901 (Version 1)
Quarter: 2015Q2

REPORT INFORMATION
  Report Type: Spontaneous
  Country: BR (occurrence: BR)
  Receive Date: 20150624
  Receipt Date: 20150624
  Transmission Date: 20150821
  Serious: Yes (Other)
  Sender: FDA-Public Use
  Company Number: BR-SA-2015SA025212

PATIENT
  Age: 30 Year
  Sex: Female
  Weight: 95 kg

DRUGS (3)
  1. CLEXANE SAFETY LOCK [Suspect]
     Active Substance: ENOXAPARIN SODIUM
     Indication: THROMBOSIS
     Dosage: DOSE: 1 SYRINGE OF 40 MG AT NIGHT
     Route: 058
     Dates: start: 201410, end: 201502
  2. CLEXANE SAFETY LOCK [Suspect]
     Active Substance: ENOXAPARIN SODIUM
     Indication: THROMBOSIS
     Dosage: DOSE: 1 SYRINGE OF 20MG AT NIGHT
     Route: 058
     Dates: start: 201410, end: 201502
  3. CLEXANE SAFETY LOCK [Suspect]
     Active Substance: ENOXAPARIN SODIUM
     Indication: THROMBOSIS
     Dosage: DOSE: 1 SYRINGE OF 60 MG AT NIGHT
     Route: 058
     Dates: start: 201502

REACTIONS (2)
  - Exposure during pregnancy [Unknown]
  - Abortion spontaneous [Unknown]
